FAERS Safety Report 5274315-1 (Version None)
Quarter: 2007Q1

REPORT INFORMATION
  Report Type: 
  Country: None (occurrence: None)
  Receive Date: 20070323
  Receipt Date: 20070313
  Transmission Date: 20070707
  Serious: Yes (Hospitalization)
  Sender: FDA-Public Use
  Company Number: FR-AMGEN-UK215249

PATIENT
  Age: 57 Year
  Sex: Female

DRUGS (3)
  1. ARANESP [Suspect]
     Indication: ANAEMIA
     Route: 058
     Dates: start: 20061010
  2. PEGASYS [Suspect]
     Route: 058
     Dates: start: 20010901
  3. COPEGUS [Suspect]
     Route: 048
     Dates: start: 20010901

REACTIONS (2)
  - MANIA [None]
  - URINARY TRACT INFECTION [None]
